FAERS Safety Report 5303332-8 (Version None)
Quarter: 2007Q2

REPORT INFORMATION
  Report Type: 
  Country: None (occurrence: None)
  Receive Date: 20070420
  Receipt Date: 20070402
  Transmission Date: 20071010
  Serious: Yes (Other)
  Sender: FDA-Public Use
  Company Number: DE-GLAXOSMITHKLINE-D0052727A

PATIENT
  Age: 24 Year
  Sex: Female

DRUGS (3)
  1. LAMICTAL [Suspect]
     Indication: EPILEPSY
     Dosage: 125MG TWICE PER DAY
     Route: 048
     Dates: start: 20000101
  2. KEPPRA [Concomitant]
     Indication: EPILEPSY
     Route: 048
  3. ZONEGRAN [Concomitant]
     Indication: EPILEPSY
     Route: 065

REACTIONS (1)
  - SEBORRHOEIC DERMATITIS [None]
